FAERS Safety Report 13750614 (Version 1)
Quarter: 2017Q3

REPORT INFORMATION
  Report Type: Spontaneous
  Country: TW (occurrence: TW)
  Receive Date: 20170713
  Receipt Date: 20170713
  Transmission Date: 20171127
  Serious: Yes (Death, Life-Threatening, Hospitalization)
  Sender: FDA-Public Use
  Company Number: TW-BAUSCH-BL-2017-020842

PATIENT
  Age: 44 Year
  Sex: Male

DRUGS (11)
  1. DIPHENHYDRAMINE. [Concomitant]
     Active Substance: DIPHENHYDRAMINE
     Indication: ANTIEMETIC SUPPORTIVE CARE
  2. SULINDAC. [Suspect]
     Active Substance: SULINDAC
     Indication: ANALGESIC THERAPY
     Route: 065
     Dates: start: 1989
  3. FLUOROURACIL. [Suspect]
     Active Substance: FLUOROURACIL
     Indication: SQUAMOUS CELL CARCINOMA
     Dosage: 1.0 G/M SQUARE
     Route: 042
     Dates: start: 198907
  4. DEXAMETHASONE SALT NOT SPECIFIED [Suspect]
     Active Substance: DEXAMETHASONE
     Indication: ANTIEMETIC SUPPORTIVE CARE
     Route: 065
  5. CISPLATIN. [Suspect]
     Active Substance: CISPLATIN
     Indication: SKIN ULCER
  6. CODEINE [Concomitant]
     Active Substance: CODEINE
     Indication: ANALGESIC THERAPY
  7. FLUOROURACIL. [Suspect]
     Active Substance: FLUOROURACIL
     Indication: SKIN ULCER
  8. DEXAMETHASONE SALT NOT SPECIFIED [Suspect]
     Active Substance: DEXAMETHASONE
     Route: 065
  9. CISPLATIN. [Suspect]
     Active Substance: CISPLATIN
     Indication: SQUAMOUS CELL CARCINOMA
     Route: 041
     Dates: start: 198907
  10. CODEINE [Concomitant]
     Active Substance: CODEINE
     Indication: ANTACID THERAPY
  11. METOCLOPRAMIDE. [Concomitant]
     Active Substance: METOCLOPRAMIDE
     Indication: ANTIEMETIC SUPPORTIVE CARE

REACTIONS (2)
  - Peptic ulcer perforation [Fatal]
  - Shock [Fatal]

NARRATIVE: CASE EVENT DATE: 1989
